FAERS Safety Report 8549409-5 (Version None)
Quarter: 2012Q3

REPORT INFORMATION
  Report Type: 
  Country: None (occurrence: None)
  Receive Date: 20120730
  Receipt Date: 20120723
  Transmission Date: 20120928
  Serious: Yes (Hospitalization, Other)
  Sender: FDA-Public Use
  Company Number: NO-PFIZER INC-2012177163

PATIENT
  Age: 76 Year
  Sex: Female

DRUGS (6)
  1. DIFLUCAN [Suspect]
     Indication: FUNGAL INFECTION
     Route: 048
  2. TOLVON [Concomitant]
     Route: 048
  3. WARFARIN SODIUM [Interacting]
     Indication: THROMBOSIS PROPHYLAXIS
     Dosage: ACCORDING TO SCHEME
     Route: 048
     Dates: end: 20120704
  4. AFIPRAN [Concomitant]
     Dosage: 10 MG, AS NEEDED
  5. FENTANYL [Concomitant]
     Dosage: 2 PATCHES OF 25 MICROG/H EACH 5 DAY
     Route: 062
  6. LIPITOR [Concomitant]
     Route: 048

REACTIONS (4)
  - DRUG INTERACTION [None]
  - HAEMATEMESIS [None]
  - MELAENA [None]
  - GASTRITIS HAEMORRHAGIC [None]
